FAERS Safety Report 12315775 (Version 1)
Quarter: 2016Q2

REPORT INFORMATION
  Report Type: Spontaneous
  Country: US (occurrence: US)
  Receive Date: 20160428
  Receipt Date: 20160428
  Transmission Date: 20160815
  Serious: No
  Sender: FDA-Public Use
  Company Number: US-AKRIMAX-TIR-2016-0197

PATIENT
  Sex: Female
  Weight: 55.39 kg

DRUGS (4)
  1. TIROSINT [Suspect]
     Active Substance: LEVOTHYROXINE SODIUM
     Indication: THYROID CANCER
     Dosage: DAILY
     Route: 048
     Dates: start: 201510
  2. TIROSINT [Suspect]
     Active Substance: LEVOTHYROXINE SODIUM
     Indication: THYROID CANCER
     Dosage: ONE 112MCG CAPSULE MONDAY THROUGH SATURDAY AND ONE 25MCG CAPSULE ON SUNDAY
     Route: 048
     Dates: start: 201601
  3. TIROSINT [Suspect]
     Active Substance: LEVOTHYROXINE SODIUM
     Dosage: ONE CAPSULE MONDAY THROUGH SATURDAY
     Route: 048
     Dates: start: 2015
  4. WELCHOL [Concomitant]
     Active Substance: COLESEVELAM HYDROCHLORIDE
     Indication: IRRITABLE BOWEL SYNDROME
     Dates: start: 2016

REACTIONS (9)
  - Blood thyroid stimulating hormone decreased [Not Recovered/Not Resolved]
  - Depression [Unknown]
  - Palpitations [Unknown]
  - Hyperhidrosis [Unknown]
  - Insomnia [Unknown]
  - Myalgia [Unknown]
  - Tendon discomfort [Unknown]
  - Asthenia [Not Recovered/Not Resolved]
  - Blood thyroid stimulating hormone increased [Unknown]

NARRATIVE: CASE EVENT DATE: 2015
